FAERS Safety Report 9010633 (Version 2)
Quarter: 2013Q1

REPORT INFORMATION
  Report Type: Spontaneous
  Country: CA (occurrence: CA)
  Receive Date: 20130109
  Receipt Date: 20130212
  Transmission Date: 20140127
  Serious: Yes (Other)
  Sender: FDA-Public Use
  Company Number: CA-PFIZER INC-2013007401

PATIENT
  Sex: Female
  Weight: 95 kg

DRUGS (3)
  1. CHAMPIX [Suspect]
     Indication: SMOKING CESSATION THERAPY
     Dosage: 1 MG, 2X/DAY
     Route: 048
  2. CHAMPIX [Suspect]
     Dosage: UNK
     Dates: start: 2012
  3. SYNTHROID [Concomitant]
     Indication: THYROID DISORDER
     Dosage: UNK

REACTIONS (5)
  - Convulsion [Recovered/Resolved]
  - Fall [Unknown]
  - Head injury [Unknown]
  - Contusion [Unknown]
  - Urinary incontinence [Unknown]
